FAERS Safety Report 14048045 (Version 2)
Quarter: 2018Q1

REPORT INFORMATION
  Report Type: Spontaneous
  Country: US (occurrence: US)
  Receive Date: 20171005
  Receipt Date: 20180103
  Transmission Date: 20180508
  Serious: Yes (Other)
  Sender: FDA-Public Use
  Company Number: US-ABBVIE-17P-163-2118769-00

PATIENT
  Age: 67 Year
  Sex: Female
  Weight: 72.1 kg

DRUGS (11)
  1. ROPINOL [Suspect]
     Active Substance: ROPINIROLE HYDROCHLORIDE
     Indication: PRODUCT USED FOR UNKNOWN INDICATION
     Route: 065
  2. VALSARTAN. [Suspect]
     Active Substance: VALSARTAN
     Indication: PRODUCT USED FOR UNKNOWN INDICATION
     Route: 065
  3. HYDROCHLOROTHIAZIDE. [Suspect]
     Active Substance: HYDROCHLOROTHIAZIDE
     Indication: PRODUCT USED FOR UNKNOWN INDICATION
     Route: 065
  4. TEMAZEPAM. [Concomitant]
     Active Substance: TEMAZEPAM
     Indication: PRODUCT USED FOR UNKNOWN INDICATION
  5. MARLEX [Concomitant]
     Indication: PRODUCT USED FOR UNKNOWN INDICATION
  6. SYNTHROID [Suspect]
     Active Substance: LEVOTHYROXINE SODIUM
     Indication: PRODUCT USED FOR UNKNOWN INDICATION
     Route: 048
  7. REPATHA [Suspect]
     Active Substance: EVOLOCUMAB
     Indication: BLOOD CHOLESTEROL INCREASED
     Route: 065
     Dates: end: 20170628
  8. IMIPRAMINE [Suspect]
     Active Substance: IMIPRAMINE
     Indication: PRODUCT USED FOR UNKNOWN INDICATION
     Route: 065
  9. LORAZEPAM. [Suspect]
     Active Substance: LORAZEPAM
     Indication: PRODUCT USED FOR UNKNOWN INDICATION
     Route: 065
  10. AMLODIPINE [Suspect]
     Active Substance: AMLODIPINE BESYLATE
     Indication: PRODUCT USED FOR UNKNOWN INDICATION
     Route: 065
  11. CLOPIDOGREL [Suspect]
     Active Substance: CLOPIDOGREL BISULFATE
     Indication: PRODUCT USED FOR UNKNOWN INDICATION
     Route: 065

REACTIONS (28)
  - Aphasia [Unknown]
  - Malaise [Unknown]
  - Impaired driving ability [Unknown]
  - Tremor [Unknown]
  - Muscular weakness [Unknown]
  - Dizziness [Unknown]
  - Gastrointestinal pain [Unknown]
  - Nausea [Unknown]
  - Pain [Unknown]
  - Muscle injury [Unknown]
  - General physical health deterioration [Unknown]
  - Full blood count abnormal [Unknown]
  - Abdominal pain [Unknown]
  - Weight decreased [Unknown]
  - Hypothyroidism [Unknown]
  - Abdominal rigidity [Unknown]
  - Reaction to excipient [Unknown]
  - Dehydration [Unknown]
  - Pain in extremity [Unknown]
  - Drug administration error [Unknown]
  - Visual impairment [Unknown]
  - Headache [Unknown]
  - Decreased appetite [Unknown]
  - Formication [Unknown]
  - Dyspnoea [Unknown]
  - Feeding disorder [Unknown]
  - Parosmia [Unknown]
  - Back pain [Unknown]
